FAERS Safety Report 17550344 (Version 1)
Quarter: 2020Q1

REPORT INFORMATION
  Report Type: Spontaneous
  Country: AR (occurrence: AR)
  Receive Date: 20200317
  Receipt Date: 20200317
  Transmission Date: 20200409
  Serious: Yes (Other)
  Sender: FDA-Public Use
  Company Number: AR-PFIZER INC-2020114200

PATIENT
  Age: 47 Year
  Sex: Female

DRUGS (1)
  1. XELJANZ XR [Suspect]
     Active Substance: TOFACITINIB CITRATE
     Indication: PAIN
     Dosage: 11 MG, 1X/DAY
     Dates: start: 20190910

REACTIONS (5)
  - Arthritis [Unknown]
  - Fibromyalgia [Unknown]
  - Therapeutic product effect incomplete [Unknown]
  - Osteoarthritis [Unknown]
  - Hydrocephalus [Unknown]

NARRATIVE: CASE EVENT DATE: 2020
